FAERS Safety Report 15864073 (Version 2)
Quarter: 2019Q4

REPORT INFORMATION
  Report Type: Spontaneous
  Country: ES (occurrence: ES)
  Receive Date: 20190124
  Receipt Date: 20191231
  Transmission Date: 20200122
  Serious: Yes (Other)
  Sender: FDA-Public Use
  Company Number: ES-JNJFOC-20140813019

PATIENT

DRUGS (14)
  1. REMICADE [Suspect]
     Active Substance: INFLIXIMAB
     Indication: BEHCET^S SYNDROME
  2. AZATHIOPRINE. [Concomitant]
     Active Substance: AZATHIOPRINE
     Indication: UVEITIS
     Dosage: 137.2   32.3 MG/DAY
  3. CYCLOPHOSPHAMIDE. [Concomitant]
     Active Substance: CYCLOPHOSPHAMIDE
     Indication: UVEITIS
  4. CYCLOPHOSPHAMIDE. [Concomitant]
     Active Substance: CYCLOPHOSPHAMIDE
     Indication: BEHCET^S SYNDROME
  5. METHOTREXATE. [Concomitant]
     Active Substance: METHOTREXATE
     Indication: BEHCET^S SYNDROME
  6. AZATHIOPRINE. [Concomitant]
     Active Substance: AZATHIOPRINE
     Indication: BEHCET^S SYNDROME
  7. MYCOPHENOLATE MOFETIL. [Concomitant]
     Active Substance: MYCOPHENOLATE MOFETIL
     Indication: UVEITIS
  8. PREDNISONE. [Concomitant]
     Active Substance: PREDNISONE
     Indication: UVEITIS
     Dosage: MEAN DOSE 54.35   15.84 MG/DAY
  9. CYCLOSPORIN A [Concomitant]
     Active Substance: CYCLOSPORINE
     Indication: UVEITIS
     Dosage: 4.9   0.8 MG/KG/DAY
  10. MYCOPHENOLATE MOFETIL. [Concomitant]
     Active Substance: MYCOPHENOLATE MOFETIL
     Indication: BEHCET^S SYNDROME
  11. REMICADE [Suspect]
     Active Substance: INFLIXIMAB
     Indication: UVEITIS
     Dosage: 3 TO 5 MG/KG, 0, 2, AND 6 WEEKS AND EVERY 4 TO 8 WEEKS
     Route: 042
  12. METHOTREXATE. [Concomitant]
     Active Substance: METHOTREXATE
     Indication: UVEITIS
     Dosage: 15.6   4.6 MG/WEEK
  13. CYCLOSPORIN A [Concomitant]
     Active Substance: CYCLOSPORINE
     Indication: BEHCET^S SYNDROME
  14. PREDNISONE. [Concomitant]
     Active Substance: PREDNISONE
     Indication: BEHCET^S SYNDROME

REACTIONS (10)
  - Colon cancer [Unknown]
  - Adverse drug reaction [Unknown]
  - Skin reaction [Unknown]
  - Pneumonia bacterial [Unknown]
  - Mouth ulceration [Unknown]
  - Tuberculosis [Unknown]
  - Infusion related reaction [Unknown]
  - Drug ineffective for unapproved indication [Unknown]
  - Toxicity to various agents [Unknown]
  - Off label use [Unknown]
